FAERS Safety Report 6761684-6 (Version None)
Quarter: 2010Q2

REPORT INFORMATION
  Report Type: 
  Country: None (occurrence: None)
  Receive Date: 20100609
  Receipt Date: 20100601
  Transmission Date: 20101027
  Serious: No
  Sender: FDA-Public Use
  Company Number: 2010BI003591

PATIENT
  Sex: Female

DRUGS (2)
  1. TYSABRI [Suspect]
     Indication: MULTIPLE SCLEROSIS
     Route: 042
     Dates: start: 20080513, end: 20081208
  2. TYSABRI [Suspect]
     Route: 042
     Dates: start: 20090827

REACTIONS (9)
  - COGNITIVE DISORDER [None]
  - DYSACUSIS [None]
  - DYSPNOEA [None]
  - FATIGUE [None]
  - HEADACHE [None]
  - MENTAL IMPAIRMENT [None]
  - NEURALGIA [None]
  - SINUSITIS [None]
  - WEIGHT DECREASED [None]
